FAERS Safety Report 4413687-4 (Version None)
Quarter: 2004Q2

REPORT INFORMATION
  Report Type: 
  Country: None (occurrence: None)
  Receive Date: 20040630
  Receipt Date: 20040322
  Transmission Date: 20050107
  Serious: No
  Sender: FDA-Public Use
  Company Number: 04P-163-0254221-00

PATIENT
  Age: 53 Year
  Sex: Female
  Weight: 86.637 kg

DRUGS (8)
  1. HUMIRA [Suspect]
     Indication: RHEUMATOID ARTHRITIS
     Dosage: 40 MG, 1 IN 2 WK, SUBCUTANEOUS
     Route: 058
     Dates: start: 20031229, end: 20040322
  2. HYDROXYCHLOROQUINE PHOSPHATE [Concomitant]
  3. METHOTREXATE [Concomitant]
  4. FOLIC ACID [Concomitant]
  5. ROFECOXIB [Concomitant]
  6. LOSARTAN POTASSIUM [Concomitant]
  7. ZOCOR [Concomitant]
  8. MULTIVITAMIN [Concomitant]

REACTIONS (1)
  - NASOPHARYNGITIS [None]
